FAERS Safety Report 9965519 (Version 1)
Quarter: 2014Q1

REPORT INFORMATION
  Report Type: Spontaneous
  Country: US (occurrence: US)
  Receive Date: 20140305
  Receipt Date: 20140305
  Transmission Date: 20141002
  Serious: No
  Sender: FDA-Public Use
  Company Number: US-ABBVIE-13P-163-1126849-00

PATIENT
  Age: 42 Year
  Sex: Male
  Weight: 100.79 kg

DRUGS (14)
  1. HUMIRA [Suspect]
     Indication: PSORIATIC ARTHROPATHY
     Route: 058
     Dates: start: 20080708
  2. METFORMIN [Concomitant]
     Indication: DIABETES MELLITUS
  3. LISINOPRIL [Concomitant]
     Indication: HYPERTENSION
  4. ACTOS [Concomitant]
     Indication: DIABETES MELLITUS
  5. IBUPROFEN [Concomitant]
     Indication: PSORIATIC ARTHROPATHY
  6. NAPROSYN [Concomitant]
     Indication: PSORIATIC ARTHROPATHY
  7. GLYBURIDE [Concomitant]
     Indication: DIABETES MELLITUS
  8. JANUVIA [Concomitant]
     Indication: DIABETES MELLITUS
  9. METHOTREXATE [Concomitant]
     Indication: PSORIATIC ARTHROPATHY
  10. FOLIC ACID [Concomitant]
     Indication: VITAMIN SUPPLEMENTATION
  11. PROBIOTICS [Concomitant]
     Indication: VITAMIN SUPPLEMENTATION
  12. GLUCOSAMINE CHONDROITIN [Concomitant]
     Indication: VITAMIN SUPPLEMENTATION
  13. VITAMIN D NOS [Concomitant]
     Indication: VITAMIN SUPPLEMENTATION
  14. CINNAMON [Concomitant]
     Indication: SUPPLEMENTATION THERAPY

REACTIONS (2)
  - Psoriasis [Not Recovered/Not Resolved]
  - Drug effect decreased [Not Recovered/Not Resolved]
